FAERS Safety Report 9747548 (Version 1)
Quarter: 2013Q4

REPORT INFORMATION
  Report Type: Spontaneous
  Country: US (occurrence: None)
  Receive Date: 20131211
  Receipt Date: 20131211
  Transmission Date: 20140711
  Serious: Yes (Death)
  Sender: FDA-Public Use
  Company Number: None

PATIENT
  Age: 84 Year
  Sex: Female
  Weight: 68.04 kg

DRUGS (10)
  1. LASIX [Suspect]
     Indication: FLUID RETENTION
  2. COUMADIN [Concomitant]
  3. KCL [Concomitant]
  4. LIPITOR [Concomitant]
  5. MULTIVITAMIN [Concomitant]
  6. ZOLOFT [Concomitant]
  7. MOBIC [Concomitant]
  8. DIGOXIN [Concomitant]
  9. MULTIVITAMIN (CENTRUM) [Concomitant]
  10. ALLEGRA [Concomitant]

REACTIONS (2)
  - Myocardial infarction [None]
  - Drug hypersensitivity [None]
